FAERS Safety Report 12539557 (Version 1)
Quarter: 2016Q3

REPORT INFORMATION
  Report Type: Spontaneous
  Country: US (occurrence: US)
  Receive Date: 20160708
  Receipt Date: 20160708
  Transmission Date: 20161109
  Serious: No
  Sender: FDA-Public Use
  Company Number: US-ACTAVIS-2016-04834

PATIENT
  Age: 49 Year
  Sex: Female

DRUGS (1)
  1. TIZANIDINE HYDROCHLORIDE (AELLC) [Suspect]
     Active Substance: TIZANIDINE HYDROCHLORIDE
     Indication: MUSCLE SPASMS
     Dosage: UNK, SINGLE
     Route: 065

REACTIONS (1)
  - Somnolence [Unknown]
